FAERS Safety Report 8186878-7 (Version None)
Quarter: 2012Q1

REPORT INFORMATION
  Report Type: 
  Country: None (occurrence: None)
  Receive Date: 20120213
  Receipt Date: 20111117
  Transmission Date: 20120608
  Serious: No
  Sender: FDA-Public Use
  Company Number: 1000009669

PATIENT
  Age: 55 Year
  Sex: Female

DRUGS (12)
  1. LYRICA [Concomitant]
  2. AMBIEN [Concomitant]
  3. SAVELLA [Suspect]
     Indication: FIBROMYALGIA
     Dosage: 12.5 MG ((12.5 MG, 1 IN 1 D) ;25 MG ((12.5 MG, 2 IN 1 D); 50 MG (25 MG, 2 IN 1 D), ORAL
     Route: 048
     Dates: start: 20090618, end: 20090621
  4. SAVELLA [Suspect]
     Indication: FIBROMYALGIA
     Dosage: 12.5 MG ((12.5 MG, 1 IN 1 D) ;25 MG ((12.5 MG, 2 IN 1 D); 50 MG (25 MG, 2 IN 1 D), ORAL
     Route: 048
     Dates: start: 20090615, end: 20090615
  5. SAVELLA [Suspect]
     Indication: FIBROMYALGIA
     Dosage: 12.5 MG ((12.5 MG, 1 IN 1 D) ;25 MG ((12.5 MG, 2 IN 1 D); 50 MG (25 MG, 2 IN 1 D), ORAL
     Route: 048
     Dates: start: 20090616, end: 20090617
  6. ZOCOR [Concomitant]
  7. FROVA [Concomitant]
  8. SAVELLA [Suspect]
     Indication: FIBROMYALGIA
     Dosage: 100 MG (50 MG, 2 IN 1 D), ORAL
     Route: 048
     Dates: start: 20090622, end: 20090901
  9. XANAX [Concomitant]
  10. PAMELOR [Concomitant]
  11. FLEXERIL (CYCLOBENZAPRIONE) [Concomitant]
  12. PROTONIX [Concomitant]

REACTIONS (1)
  - AGGRESSION [None]
